FAERS Safety Report 6303810-9 (Version None)
Quarter: 2009Q3

REPORT INFORMATION
  Report Type: 
  Country: None (occurrence: None)
  Receive Date: 20090810
  Receipt Date: 20090805
  Transmission Date: 20100115
  Serious: Yes (Hospitalization)
  Sender: FDA-Public Use
  Company Number: CH-MERCK-0908CHE00003

PATIENT
  Age: 81 Year
  Sex: Female

DRUGS (3)
  1. PRINIVIL [Suspect]
     Indication: ESSENTIAL HYPERTENSION
     Route: 048
     Dates: end: 20090410
  2. AMLODIPINE BESYLATE [Suspect]
     Indication: ESSENTIAL HYPERTENSION
     Route: 048
     Dates: end: 20090410
  3. ESOMEPRAZOLE MAGNESIUM [Concomitant]
     Indication: DUODENAL ULCER HAEMORRHAGE
     Route: 042
     Dates: start: 20090410, end: 20090413

REACTIONS (2)
  - CONDITION AGGRAVATED [None]
  - SHOCK [None]
